FAERS Safety Report 16385874 (Version 2)
Quarter: 2019Q2

REPORT INFORMATION
  Report Type: Report from Study
  Country: DE (occurrence: DE)
  Receive Date: 20190603
  Receipt Date: 20190627
  Transmission Date: 20190711
  Serious: Yes (Hospitalization)
  Sender: FDA-Public Use
  Company Number: DE-SHIRE-DE201917565

PATIENT

DRUGS (6)
  1. TEDUGLUTIDE [Suspect]
     Active Substance: TEDUGLUTIDE
     Indication: SHORT-BOWEL SYNDROME
     Dosage: TED DAILY DOSE 2 MILLIGRAM, TED DAILY DOSE MG KG 0.05,TED DOSES PER WEEK 7
     Route: 065
     Dates: start: 20150221, end: 201607
  2. DEKRISTOL [Concomitant]
     Active Substance: CHOLECALCIFEROL
     Indication: VITAMIN D DEFICIENCY
  3. PREDNISOLONE. [Concomitant]
     Active Substance: PREDNISOLONE
     Indication: CROHN^S DISEASE
  4. CLOBETASONE [Concomitant]
     Active Substance: CLOBETASONE
     Indication: CROHN^S DISEASE
  5. TEDUGLUTIDE [Suspect]
     Active Substance: TEDUGLUTIDE
     Dosage: TED DAILY DOSE 2.8 MILLIGRAM, TED DAILY DOSE MG KG 0.05,TED DOSES PER WEEK 7
     Route: 065
     Dates: start: 201701, end: 201709
  6. PIMECROLIMUS. [Concomitant]
     Active Substance: PIMECROLIMUS
     Indication: CROHN^S DISEASE

REACTIONS (1)
  - Crohn^s disease [Recovered/Resolved]

NARRATIVE: CASE EVENT DATE: 20190522
